FAERS Safety Report 9380296 (Version 1)
Quarter: 2013Q3

REPORT INFORMATION
  Report Type: Spontaneous
  Country: DE (occurrence: DE)
  Receive Date: 20130702
  Receipt Date: 20130702
  Transmission Date: 20140515
  Serious: Yes (Other)
  Sender: FDA-Public Use
  Company Number: DE-BAYER-2013-079074

PATIENT
  Sex: Female

DRUGS (1)
  1. CANESTEN GYN 3-TAGE-KOMBI [Suspect]
     Dosage: UNK

REACTIONS (1)
  - Haemorrhage [None]
